FAERS Safety Report 8976515 (Version 1)
Quarter: 2012Q4

REPORT INFORMATION
  Report Type: 
  Country: QA (occurrence: QA)
  Receive Date: 20121220
  Receipt Date: 20121220
  Transmission Date: 20130627
  Serious: Yes (Death, Hospitalization)
  Sender: FDA-Public Use
  Company Number: QA-ROXANE LABORATORIES, INC.-2012-BI-01888GD

PATIENT
  Age: 60 Year
  Sex: Female

DRUGS (8)
  1. OMEPRAZOLE [Suspect]
     Indication: PEPTIC ULCER
     Dosage: 20 mg
  2. ATORVASTATIN [Suspect]
     Indication: HYPERLIPIDAEMIA
     Dosage: 20 mg
  3. DEXAMETHASONE [Suspect]
     Indication: SPINAL CORD COMPRESSION
     Dosage: 16 mg
  4. CALCIUM CARBONATE [Concomitant]
     Indication: MINERAL SUPPLEMENTATION
  5. TRAMADOL [Concomitant]
     Indication: CANCER PAIN
  6. CELECOXIB [Concomitant]
     Indication: BONE PAIN
  7. GABAPENTIN [Concomitant]
     Indication: NEURALGIA
  8. BISACODYL [Concomitant]
     Indication: CONSTIPATION

REACTIONS (8)
  - Urosepsis [Fatal]
  - Escherichia infection [Fatal]
  - Rhabdomyolysis [Unknown]
  - Drug interaction [Unknown]
  - Dyspnoea [Unknown]
  - Lethargy [Unknown]
  - Myalgia [Unknown]
  - Muscular weakness [Unknown]
